FAERS Safety Report 10159370 (Version 1)
Quarter: 2014Q2

REPORT INFORMATION
  Report Type: Spontaneous
  Country: TR (occurrence: None)
  Receive Date: 20140506
  Receipt Date: 20140506
  Transmission Date: 20141212
  Serious: Yes (Hospitalization)
  Sender: FDA-Public Use
  Company Number: IPC201404-000195

PATIENT
  Age: 58 Year
  Sex: Male

DRUGS (6)
  1. PROPRANOLOL HYDROCHLORIDE (PROPRANOLOL HYDROCHLORIDE (PROPRANOLOL HYDROCHLORIDE) [Suspect]
     Indication: SCHIZOPHRENIA
     Route: 048
  2. BIPERIDEN (BIPERIDEN) (BIPERIDIEN) [Suspect]
     Indication: SCHIZOPHRENIA
  3. OLANZAPINE (OLANZAPINE) (OLANZAPINE) [Suspect]
     Indication: SCHIZOPHRENIA
  4. HALOPERIDOL DECANOATE (HALOPERIDOL DECANOATE) (HALOPERIDOL DECANOATE) [Suspect]
     Indication: SCHIZOPHRENIA
  5. FLUPENTHIXOL (FLUPENTHIXOL) (FLUPENTHIXOL) [Suspect]
     Indication: SCHIZOPHRENIA
  6. ZUCLOPENTHIXOL DECANOATE (ZUCLOPENTHIXOL DECANOATE) (ZUCLOPENTHIXOL DECANOATE) [Suspect]
     Indication: SCHIZOPHRENIA

REACTIONS (6)
  - Tardive dyskinesia [None]
  - Depressed mood [None]
  - Anhedonia [None]
  - Persecutory delusion [None]
  - Fatigue [None]
  - Insomnia [None]
